FAERS Safety Report 14518726 (Version 1)
Quarter: 2018Q1

REPORT INFORMATION
  Report Type: Spontaneous
  Country: US (occurrence: US)
  Receive Date: 20180209
  Receipt Date: 20180209
  Transmission Date: 20180509
  Serious: No
  Sender: FDA-Public Use
  Company Number: None

PATIENT
  Age: 31 Year
  Sex: Male
  Weight: 77.85 kg

DRUGS (4)
  1. VITAMIN D3 [Concomitant]
     Active Substance: CHOLECALCIFEROL
  2. CIPROFLOXACIN HCL [Suspect]
     Active Substance: CIPROFLOXACIN HYDROCHLORIDE
     Indication: URINARY TRACT INFECTION
     Dosage: ?          QUANTITY:1 TABLET(S);?
     Route: 048
     Dates: start: 20180205, end: 20180206
  3. PROBIOTICS [Concomitant]
     Active Substance: PROBIOTICS NOS
  4. MEN^S MULTIVITAMIN [Concomitant]

REACTIONS (2)
  - Paraesthesia [None]
  - Arthropathy [None]

NARRATIVE: CASE EVENT DATE: 20180206
